FAERS Safety Report 22126589 (Version 1)
Quarter: 2023Q1

REPORT INFORMATION
  Report Type: Spontaneous
  Country: US (occurrence: US)
  Receive Date: 20230322
  Receipt Date: 20230322
  Transmission Date: 20230418
  Serious: No
  Sender: FDA-Public Use
  Company Number: US-AMGEN-USASP2023047736

PATIENT
  Age: 71 Year
  Sex: Female

DRUGS (1)
  1. MVASI [Suspect]
     Active Substance: BEVACIZUMAB-AWWB
     Indication: Endometrial cancer
     Dosage: 1200 MILLIGRAM, EVERY THREE WEEKS
     Route: 042
     Dates: start: 20210806

REACTIONS (2)
  - COVID-19 [Unknown]
  - Off label use [Unknown]

NARRATIVE: CASE EVENT DATE: 20210806
